FAERS Safety Report 5228271-2 (Version None)
Quarter: 2007Q1

REPORT INFORMATION
  Report Type: 
  Country: None (occurrence: None)
  Receive Date: 20070131
  Receipt Date: 20070115
  Transmission Date: 20070707
  Serious: Yes (Other)
  Sender: FDA-Public Use
  Company Number: DSA_29249_2007

PATIENT
  Age: 67 Year
  Sex: Male

DRUGS (3)
  1. ENALAPRIL MALEATE [Suspect]
     Indication: HYPERTENSION
     Dosage: 5 MG QD PO
     Route: 048
     Dates: start: 19980101, end: 20030101
  2. PLENDIL [Concomitant]
  3. SELOKEN /00376902/ [Concomitant]

REACTIONS (1)
  - PROSTATE CANCER [None]
